FAERS Safety Report 5856668-6 (Version None)
Quarter: 2008Q3

REPORT INFORMATION
  Report Type: 
  Country: None (occurrence: None)
  Receive Date: 20080825
  Receipt Date: 20080813
  Transmission Date: 20090109
  Serious: Yes (Hospitalization, Other)
  Sender: FDA-Public Use
  Company Number: CA-PFIZER INC-2008038216

PATIENT
  Sex: Male
  Weight: 96.6 kg

DRUGS (22)
  1. MARAVIROC [Suspect]
     Indication: HIV INFECTION
     Route: 048
  2. LAMIVUDINE [Concomitant]
     Indication: HIV INFECTION
     Route: 048
  3. DARUNAVIR [Concomitant]
     Indication: HIV INFECTION
     Route: 048
  4. RITONAVIR [Concomitant]
     Route: 048
  5. RALTEGRAVIR [Concomitant]
     Indication: HIV INFECTION
     Route: 048
  6. ETRAVIRINE [Concomitant]
     Route: 048
  7. BEZAFIBRATE [Concomitant]
     Route: 048
  8. SELENIUM [Concomitant]
     Route: 048
     Dates: start: 20070308
  9. MITOMYCIN [Concomitant]
     Route: 042
     Dates: start: 20071106
  10. FISH OIL [Concomitant]
     Route: 048
     Dates: start: 20061122
  11. TRAZODONE HCL [Concomitant]
     Route: 048
     Dates: start: 20061025
  12. XATRAL [Concomitant]
     Route: 048
     Dates: start: 20060313
  13. SEPTRA [Concomitant]
     Route: 048
     Dates: start: 19910101
  14. CITALOPRAM HYDROBROMIDE [Concomitant]
     Route: 048
     Dates: start: 20000101
  15. ASPIRIN [Concomitant]
     Route: 048
     Dates: start: 20040601
  16. REMERON [Concomitant]
     Route: 048
     Dates: start: 20040501
  17. SALAGEN [Concomitant]
     Route: 048
     Dates: start: 20060110
  18. CARNITOR [Concomitant]
     Route: 048
     Dates: start: 20031001
  19. ANDROGEL [Concomitant]
     Route: 048
     Dates: start: 20010101
  20. CALCIUM [Concomitant]
     Route: 048
     Dates: start: 20010101
  21. PANTOPRAZOLE [Concomitant]
     Route: 048
     Dates: start: 20010101
  22. COENZYME Q10 [Concomitant]
     Route: 048
     Dates: start: 20040601

REACTIONS (1)
  - CORONARY ARTERY DISEASE [None]
